FAERS Safety Report 5860723-4 (Version None)
Quarter: 2008Q3

REPORT INFORMATION
  Report Type: 
  Country: None (occurrence: None)
  Receive Date: 20080826
  Receipt Date: 20080813
  Transmission Date: 20090109
  Serious: Yes (Death)
  Sender: FDA-Public Use
  Company Number: 237017J08USA

PATIENT
  Age: 57 Year
  Sex: Female

DRUGS (1)
  1. REBIF [Suspect]
     Indication: MULTIPLE SCLEROSIS
     Dosage: 44 MCG, 3 IN 1 WEEKS, SUBCUTANEOUS
     Route: 058
     Dates: start: 20041113, end: 20060401

REACTIONS (6)
  - BLOOD DISORDER [None]
  - DISEASE RECURRENCE [None]
  - INFECTION [None]
  - MULTI-ORGAN FAILURE [None]
  - PNEUMONIA [None]
  - T-CELL LYMPHOMA [None]
